FAERS Safety Report 13489251 (Version 1)
Quarter: 2017Q2

REPORT INFORMATION
  Report Type: Spontaneous
  Country: IT (occurrence: IT)
  Receive Date: 20170426
  Receipt Date: 20170426
  Transmission Date: 20170830
  Serious: Yes (Hospitalization)
  Sender: FDA-Public Use
  Company Number: IT-ELI_LILLY_AND_COMPANY-IT201704009797

PATIENT
  Sex: Female

DRUGS (7)
  1. CORTISONE [Concomitant]
     Active Substance: CORTISONE\HYDROCORTISONE
  2. BRUFEN                             /00109201/ [Concomitant]
     Active Substance: IBUPROFEN
  3. TRAMADOL                           /00599202/ [Concomitant]
     Active Substance: TRAMADOL
  4. ATENOLOL. [Concomitant]
     Active Substance: ATENOLOL
  5. REUMAFLEX                          /00113802/ [Concomitant]
     Active Substance: METHOTREXATE SODIUM
  6. FORSTEO [Suspect]
     Active Substance: TERIPARATIDE
     Indication: PRODUCT USED FOR UNKNOWN INDICATION
     Dosage: UNK, UNKNOWN
     Route: 065
     Dates: start: 201610
  7. FORSTEO [Suspect]
     Active Substance: TERIPARATIDE
     Dosage: UNK, UNKNOWN
     Route: 065

REACTIONS (3)
  - Fall [Unknown]
  - Upper limb fracture [Unknown]
  - Humerus fracture [Unknown]

NARRATIVE: CASE EVENT DATE: 20170412
